FAERS Safety Report 8397889-0 (Version None)
Quarter: 2012Q2

REPORT INFORMATION
  Report Type: 
  Country: None (occurrence: None)
  Receive Date: 20120531
  Receipt Date: 20120529
  Transmission Date: 20120825
  Serious: Yes (Other)
  Sender: FDA-Public Use
  Company Number: PHHY2012JP021336

PATIENT
  Sex: Male

DRUGS (3)
  1. OMEPRAZOLE [Concomitant]
     Dosage: 10 MG
     Route: 048
     Dates: start: 20110208
  2. DIOVAN HCT [Suspect]
     Indication: HYPERTENSION
     Dosage: 1 DF, DAILY
     Route: 048
     Dates: start: 20110208
  3. ASPIRIN [Concomitant]
     Dosage: 100 MG
     Route: 048
     Dates: start: 20110208

REACTIONS (2)
  - SUPRAVENTRICULAR TACHYCARDIA [None]
  - PALPITATIONS [None]
